FAERS Safety Report 5671035-6 (Version None)
Quarter: 2008Q1

REPORT INFORMATION
  Report Type: 
  Country: None (occurrence: None)
  Receive Date: 20080318
  Receipt Date: 20080314
  Transmission Date: 20080703
  Serious: Yes (Life-Threatening, Disabling)
  Sender: FDA-Public Use
  Company Number: FI-ASTRAZENECA-2008SE01422

PATIENT
  Age: 52 Year
  Sex: Male

DRUGS (1)
  1. LIDOCAINE [Suspect]
     Indication: INTERVERTEBRAL DISC PROTRUSION
     Route: 030
     Dates: start: 20050101

REACTIONS (7)
  - AMNESIA [None]
  - ARRHYTHMIA [None]
  - CARDIAC FAILURE [None]
  - DYSKINESIA [None]
  - LOSS OF CONSCIOUSNESS [None]
  - OVERDOSE [None]
  - TACHYCARDIA [None]
